FAERS Safety Report 4280893-1 (Version None)
Quarter: 2004Q1

REPORT INFORMATION
  Report Type: 
  Country: None (occurrence: None)
  Receive Date: 20040129
  Receipt Date: 20040121
  Transmission Date: 20041129
  Serious: Yes (Hospitalization)
  Sender: FDA-Public Use
  Company Number: US-GLAXOSMITHKLINE-A0494493A

PATIENT
  Age: 52 Year
  Sex: Female

DRUGS (5)
  1. ADVAIR DISKUS 100/50 [Suspect]
     Indication: ASTHMA
     Dosage: 1PUFF TWICE PER DAY
     Route: 055
  2. FLOVENT [Suspect]
     Indication: ASTHMA
  3. SEREVENT [Suspect]
     Indication: ASTHMA
  4. ALBUTEROL [Concomitant]
  5. ALTACE [Concomitant]

REACTIONS (3)
  - FEELING ABNORMAL [None]
  - SWOLLEN TONGUE [None]
  - TONGUE DISORDER [None]
